FAERS Safety Report 6226884-2 (Version None)
Quarter: 2009Q2

REPORT INFORMATION
  Report Type: 
  Country: None (occurrence: None)
  Receive Date: 20090610
  Receipt Date: 20090528
  Transmission Date: 20091009
  Serious: Yes (Hospitalization, Other)
  Sender: FDA-Public Use
  Company Number: WAES 0905USA03326

PATIENT
  Age: 60 Year
  Sex: Male

DRUGS (2)
  1. CAP VORINOSTAT [Suspect]
     Indication: MULTIPLE MYELOMA
     Dosage: 400 MG/DAILY PO
     Route: 048
     Dates: start: 20090417, end: 20090430
  2. INFUSION (FORM) BORTEZOMIB [Suspect]
     Indication: MULTIPLE MYELOMA
     Dosage: 2.35 MG/2XW IV
     Route: 042
     Dates: start: 20090417, end: 20090427

REACTIONS (3)
  - ANAEMIA [None]
  - HYPERVISCOSITY SYNDROME [None]
  - THROMBOCYTOPENIA [None]
